FAERS Safety Report 21974576 (Version 1)
Quarter: 2023Q1

REPORT INFORMATION
  Report Type: Spontaneous
  Country: US (occurrence: US)
  Receive Date: 20230209
  Receipt Date: 20230209
  Transmission Date: 20230418
  Serious: Yes (Life-Threatening, Hospitalization, Other)
  Sender: FDA-Public Use
  Company Number: US-TEVA-2023-US-2852644

PATIENT
  Age: 16 Year
  Sex: Female
  Weight: 47.3 kg

DRUGS (5)
  1. METHYLPREDNISOLONE [Suspect]
     Active Substance: METHYLPREDNISOLONE
     Indication: Delayed haemolytic transfusion reaction
     Dosage: 2 MG/KG
     Route: 042
  2. ECULIZUMAB [Suspect]
     Active Substance: ECULIZUMAB
     Indication: Delayed haemolytic transfusion reaction
     Dosage: IV INFUSION OF ECULIZUMAB 900MG OVER 2 HOURS WEEKLY FOR 4 DOSES
     Route: 041
  3. ECULIZUMAB [Suspect]
     Active Substance: ECULIZUMAB
     Dosage: IV INFUSION OF ECULIZUMAB 1200MG OVER 2 HOURS EVERY 2 WEEKS
     Route: 041
  4. HUMAN IMMUNOGLOBULIN G [Suspect]
     Active Substance: HUMAN IMMUNOGLOBULIN G
     Indication: Delayed haemolytic transfusion reaction
     Dosage: DOSAGE: 1 G/KG
     Route: 042
  5. RITUXIMAB [Suspect]
     Active Substance: RITUXIMAB
     Indication: Delayed haemolytic transfusion reaction
     Route: 065

REACTIONS (5)
  - Staphylococcal bacteraemia [Unknown]
  - Enterobacter infection [Unknown]
  - Enterobacter bacteraemia [Unknown]
  - Osteomyelitis acute [Unknown]
  - Drug ineffective [Unknown]
